FAERS Safety Report 19313798 (Version 1)
Quarter: 2021Q2

REPORT INFORMATION
  Report Type: Spontaneous
  Country: US (occurrence: US)
  Receive Date: 20210527
  Receipt Date: 20210527
  Transmission Date: 20210717
  Serious: Yes (Life-Threatening, Disabling, Other)
  Sender: FDA-Public Use
  Company Number: None

PATIENT
  Age: 55 Year
  Sex: Male
  Weight: 90.72 kg

DRUGS (17)
  1. OMEPRAZOLE 40MG TABLETS [Suspect]
     Active Substance: OMEPRAZOLE
     Indication: DYSPEPSIA
     Dosage: ?          QUANTITY:1 DF DOSAGE FORM;?
     Route: 048
     Dates: start: 20120412, end: 20210112
  2. ALENDRONATE [Concomitant]
     Active Substance: ALENDRONATE SODIUM
  3. FAMOTIDINE. [Concomitant]
     Active Substance: FAMOTIDINE
  4. ATORVASTATIN [Concomitant]
     Active Substance: ATORVASTATIN
  5. 81 MG ASPIRAN [Concomitant]
  6. HAIR SKIN + NAILS [Concomitant]
  7. FLUTICASONE. [Concomitant]
     Active Substance: FLUTICASONE
  8. VITAMIN D [Concomitant]
     Active Substance: VITAMIN D NOS
  9. OMEPRAZOLE. [Suspect]
     Active Substance: OMEPRAZOLE
     Indication: DYSPEPSIA
     Route: 048
     Dates: start: 20120412, end: 20210112
  10. OMEPRAZOLE. [Suspect]
     Active Substance: OMEPRAZOLE
     Indication: DYSPEPSIA
  11. FISH OIL [Concomitant]
     Active Substance: FISH OIL
  12. CALCIUM [Concomitant]
     Active Substance: CALCIUM
  13. OMEPRAZOLE. [Suspect]
     Active Substance: OMEPRAZOLE
     Indication: DYSPEPSIA
     Dosage: ?          QUANTITY:1 DF DOSAGE FORM;?
     Route: 048
     Dates: start: 20120412, end: 20210112
  14. VALACYCLOVIR [Concomitant]
     Active Substance: VALACYCLOVIR HYDROCHLORIDE
  15. LOSARTAN. [Concomitant]
     Active Substance: LOSARTAN
  16. GARLIC PILLS [Concomitant]
  17. VITAMIN D2 [Concomitant]
     Active Substance: ERGOCALCIFEROL

REACTIONS (1)
  - Osteopenia [None]
